FAERS Safety Report 20391146 (Version 1)
Quarter: 2022Q1

REPORT INFORMATION
  Report Type: Spontaneous
  Country: IN (occurrence: IN)
  Receive Date: 20220128
  Receipt Date: 20220128
  Transmission Date: 20220423
  Serious: Yes (Death)
  Sender: FDA-Public Use
  Company Number: IN-PFIZER INC-2020362895

PATIENT
  Age: 72 Year
  Sex: Male
  Weight: 46 kg

DRUGS (1)
  1. SUTENT [Suspect]
     Active Substance: SUNITINIB MALATE
     Indication: Metastatic renal cell carcinoma
     Dosage: 50 MG, CYCLIC (ONCE A DAY, 2 WEEKS ON AND 1 WEEK OFF)
     Route: 048
     Dates: start: 20200926, end: 2020

REACTIONS (3)
  - Death [Fatal]
  - Blood pressure increased [Unknown]
  - Neoplasm progression [Unknown]

NARRATIVE: CASE EVENT DATE: 20200101
